FAERS Safety Report 11825430 (Version 5)
Quarter: 2020Q4

REPORT INFORMATION
  Report Type: Other
  Country: CA (occurrence: CA)
  Receive Date: 20151211
  Receipt Date: 20201110
  Transmission Date: 20210113
  Serious: Yes (Other)
  Sender: FDA-Public Use
  Company Number: CA-ROCHE-1594280

PATIENT
  Age: 26 Year
  Sex: Male
  Weight: 110 kg

DRUGS (13)
  1. RITUXAN [Suspect]
     Active Substance: RITUXIMAB
     Dosage: LAST INFUSION 11/DEC/2015
     Route: 042
     Dates: start: 20141219
  2. CANDESARTAN. [Suspect]
     Active Substance: CANDESARTAN
     Route: 065
     Dates: start: 2015
  3. METHYLPREDNISOLONE. [Concomitant]
     Active Substance: METHYLPREDNISOLONE
     Indication: PREMEDICATION
     Route: 042
     Dates: start: 20141219
  4. PANTOLOC [Concomitant]
     Active Substance: PANTOPRAZOLE SODIUM
  5. PREDNISONE. [Concomitant]
     Active Substance: PREDNISONE
  6. SULFATRIM [Concomitant]
     Active Substance: SULFAMETHOXAZOLE\TRIMETHOPRIM
  7. CANDESARTAN. [Suspect]
     Active Substance: CANDESARTAN
     Indication: PROTEIN URINE PRESENT
     Route: 065
     Dates: start: 201405, end: 201508
  8. ACETYLSALICYLIC ACID [Concomitant]
     Active Substance: ASPIRIN
  9. RITUXAN [Suspect]
     Active Substance: RITUXIMAB
     Dosage: UNKNOWN X 1 DOSE
     Route: 042
     Dates: start: 20131219, end: 20131219
  10. DIPHENHYDRAMINE HCL [Concomitant]
     Active Substance: DIPHENHYDRAMINE HYDROCHLORIDE
     Indication: PREMEDICATION
     Route: 048
     Dates: start: 20141219
  11. ACETAMINOPHEN. [Concomitant]
     Active Substance: ACETAMINOPHEN
     Indication: PREMEDICATION
     Route: 048
     Dates: start: 20141219
  12. RITUXAN [Suspect]
     Active Substance: RITUXIMAB
     Indication: GRANULOMATOSIS WITH POLYANGIITIS
     Route: 042
     Dates: start: 20130502, end: 20130522
  13. WARFARIN [Concomitant]
     Active Substance: WARFARIN

REACTIONS (11)
  - Blood pressure increased [Unknown]
  - Infusion related reaction [Recovered/Resolved]
  - Vasculitis [Not Recovered/Not Resolved]
  - Infusion related reaction [Not Recovered/Not Resolved]
  - Intentional product use issue [Unknown]
  - Pharyngeal swelling [Not Recovered/Not Resolved]
  - Oropharyngeal pain [Recovered/Resolved]
  - Urticaria [Recovering/Resolving]
  - Protein urine present [Unknown]
  - Heart rate decreased [Unknown]
  - Off label use [Unknown]

NARRATIVE: CASE EVENT DATE: 2015
